FAERS Safety Report 21271496 (Version 2)
Quarter: 2022Q4

REPORT INFORMATION
  Report Type: Spontaneous
  Country: JP (occurrence: JP)
  Receive Date: 20220830
  Receipt Date: 20221216
  Transmission Date: 20230113
  Serious: Yes (Hospitalization)
  Sender: FDA-Public Use
  Company Number: JP-ELI_LILLY_AND_COMPANY-JP202208012608

PATIENT
  Age: 1 Year
  Sex: Male
  Weight: 6.3 kg

DRUGS (6)
  1. TADALAFIL [Suspect]
     Active Substance: TADALAFIL
     Indication: Pulmonary hypertension
     Dosage: 12 MG, DAILY
     Route: 065
  2. UPTRAVI [Suspect]
     Active Substance: SELEXIPAG
     Indication: Pulmonary hypertension
     Dosage: 0.025 MG, BID
     Route: 048
     Dates: start: 20180817, end: 20180902
  3. UPTRAVI [Suspect]
     Active Substance: SELEXIPAG
     Dosage: 0.05 MG, BID
     Route: 048
     Dates: start: 20180903, end: 20180918
  4. UPTRAVI [Suspect]
     Active Substance: SELEXIPAG
     Dosage: 0.075 MG, BID
     Route: 048
     Dates: start: 20180919, end: 20181104
  5. UPTRAVI [Suspect]
     Active Substance: SELEXIPAG
     Dosage: 0.1 MG, BID
     Route: 048
     Dates: start: 20181105, end: 20181207
  6. OPSUMIT [Concomitant]
     Active Substance: MACITENTAN
     Indication: Pulmonary hypertension
     Dosage: 1.1 MG, UNKNOWN
     Route: 065

REACTIONS (2)
  - Pulmonary congestion [Recovered/Resolved]
  - Off label use [Unknown]

NARRATIVE: CASE EVENT DATE: 20181207
